FAERS Safety Report 10244574 (Version 2)
Quarter: 2014Q3

REPORT INFORMATION
  Report Type: Spontaneous
  Country: US (occurrence: US)
  Receive Date: 20140618
  Receipt Date: 20140703
  Transmission Date: 20150326
  Serious: Yes (Other)
  Sender: FDA-Public Use
  Company Number: US-VIIV HEALTHCARE LIMITED-A1074796A

PATIENT
  Age: 54 Year
  Sex: Male
  Weight: 125 kg

DRUGS (8)
  1. LOSARTAN [Concomitant]
     Active Substance: LOSARTAN
  2. CIALIS [Concomitant]
     Active Substance: TADALAFIL
  3. TIVICAY [Suspect]
     Active Substance: DOLUTEGRAVIR SODIUM
     Indication: PRODUCT USED FOR UNKNOWN INDICATION
     Dosage: 50MG UNKNOWN
     Route: 048
     Dates: start: 20140127, end: 20140403
  4. SKELAXIN [Concomitant]
     Active Substance: METAXALONE
  5. TESTOSTERONE. [Concomitant]
     Active Substance: TESTOSTERONE
  6. HYDROCODONE [Concomitant]
     Active Substance: HYDROCODONE
  7. ULORIC [Concomitant]
     Active Substance: FEBUXOSTAT
  8. TRUVADA [Concomitant]
     Active Substance: EMTRICITABINE\TENOFOVIR DISOPROXIL FUMARATE

REACTIONS (4)
  - Disorientation [Recovered/Resolved]
  - Suicidal ideation [Recovered/Resolved]
  - Sleep disorder [Recovered/Resolved]
  - Fatigue [Recovered/Resolved]

NARRATIVE: CASE EVENT DATE: 20140403
